FAERS Safety Report 21913604 (Version 2)
Quarter: 2023Q1

REPORT INFORMATION
  Report Type: Report from Study
  Country: US (occurrence: US)
  Receive Date: 20230125
  Receipt Date: 20230201
  Transmission Date: 20230417
  Serious: No
  Sender: FDA-Public Use
  Company Number: US-002147023-NVSC2023US017192

PATIENT
  Sex: Female

DRUGS (2)
  1. PROMACTA [Suspect]
     Active Substance: ELTROMBOPAG OLAMINE
     Indication: Product used for unknown indication
     Dosage: 12.5 MG (1 TABLET THREE TIMES WEEKLY)
     Route: 065
     Dates: start: 20220622
  2. PROMACTA [Suspect]
     Active Substance: ELTROMBOPAG OLAMINE
     Dosage: 25 MG (12.5MG MONDAY,WEDNESDAY,FRIDAY AND 25MG ON TUESDAY, THURSDAY,SATURDAY AND SUNDAY)
     Route: 065

REACTIONS (1)
  - Platelet count decreased [Unknown]
